FAERS Safety Report 7698857-4 (Version None)
Quarter: 2011Q3

REPORT INFORMATION
  Report Type: 
  Country: None (occurrence: None)
  Receive Date: 20110819
  Receipt Date: 20110808
  Transmission Date: 20111222
  Serious: No
  Sender: FDA-Public Use
  Company Number: US-BAYER-2011-070560

PATIENT
  Age: 29 Year
  Sex: Female

DRUGS (1)
  1. ULTRAVIST 150 [Suspect]
     Indication: COMPUTERISED TOMOGRAM HEAD
     Dosage: 50 ML, UNK
     Route: 042
     Dates: start: 20110727, end: 20110727

REACTIONS (1)
  - EYELID OEDEMA [None]
